FAERS Safety Report 18451476 (Version 1)
Quarter: 2020Q4

REPORT INFORMATION
  Report Type: Report from Study
  Country: US (occurrence: US)
  Receive Date: 20201102
  Receipt Date: 20201102
  Transmission Date: 20210114
  Serious: Yes (Death, Life-Threatening, Other)
  Sender: FDA-Public Use
  Company Number: NVSC2020US292638

PATIENT
  Age: 47 Year
  Sex: Male

DRUGS (2)
  1. KYMRIAH [Suspect]
     Active Substance: TISAGENLECLEUCEL
     Indication: DIFFUSE LARGE B-CELL LYMPHOMA
     Dosage: UNK
     Route: 065
     Dates: start: 20200131
  2. CYCLOPHOSPHAMIDE. [Concomitant]
     Active Substance: CYCLOPHOSPHAMIDE
     Indication: CHEMOTHERAPY
     Route: 065

REACTIONS (13)
  - Thrombocytopenia [Not Recovered/Not Resolved]
  - Diffuse large B-cell lymphoma [Fatal]
  - Aspiration [Unknown]
  - Haemoglobin decreased [Unknown]
  - Cytokine release syndrome [Not Recovered/Not Resolved]
  - Neutropenia [Not Recovered/Not Resolved]
  - Fungal infection [Unknown]
  - Viral infection [Unknown]
  - Cardiac failure [Unknown]
  - Cytopenia [Not Recovered/Not Resolved]
  - Organ failure [Unknown]
  - Haematocrit decreased [Unknown]
  - Pyrexia [Unknown]
